FAERS Safety Report 6208348-5 (Version None)
Quarter: 2009Q2

REPORT INFORMATION
  Report Type: 
  Country: None (occurrence: None)
  Receive Date: 20090529
  Receipt Date: 20090518
  Transmission Date: 20091009
  Serious: Yes (Other)
  Sender: FDA-Public Use
  Company Number: GB-JNJFOC-20090504341

PATIENT
  Weight: 71 kg

DRUGS (13)
  1. REMICADE [Suspect]
     Route: 042
  2. REMICADE [Suspect]
     Indication: RHEUMATOID ARTHRITIS
     Route: 042
  3. METHOTREXATE [Concomitant]
  4. ARTHROTEC [Concomitant]
  5. ATORVASTATIN [Concomitant]
  6. BENDROFLUAZIDE [Concomitant]
  7. CALCITE [Concomitant]
  8. ACETAMINOPHEN W/ CODEINE [Concomitant]
  9. FOLIC ACID [Concomitant]
  10. RAMIPRIL [Concomitant]
  11. LEVOTHYROXINE SODIUM [Concomitant]
  12. ZOLPIDEM [Concomitant]
  13. ASPIRIN [Concomitant]

REACTIONS (1)
  - SKIN CANCER [None]
